FAERS Safety Report 10146828 (Version 3)
Quarter: 2014Q2

REPORT INFORMATION
  Report Type: Spontaneous
  Country: IT (occurrence: None)
  Receive Date: 20140429
  Receipt Date: 20140521
  Transmission Date: 20141212
  Serious: Yes (Hospitalization)
  Sender: FDA-Public Use
  Company Number: AUR-APL-2014-05043

PATIENT
  Age: 74 Year
  Sex: Female

DRUGS (6)
  1. VALSARTAN+HYDROCHLOROTHIAZIDE [Suspect]
     Indication: HYPERTENSION
  2. LITHIUM CARBONATE [Suspect]
     Indication: MENTAL RETARDATION
     Dosage: 600 MG (300 MG,2 IN 1 D)
  3. LITHIUM CARBONATE [Suspect]
     Indication: BIPOLAR DISORDER
     Dosage: 600 MG (300 MG,2 IN 1 D)
  4. CLOMIPRAMINE [Suspect]
     Indication: MENTAL RETARDATION
  5. CLOMIPRAMINE [Suspect]
     Indication: BIPOLAR DISORDER
  6. GLIMEPIRIDE  (GLIMEPIRIDE) [Concomitant]

REACTIONS (7)
  - Hypothyroidism [None]
  - Parkinsonism [None]
  - Toxicity to various agents [None]
  - Drug interaction [None]
  - Drug level increased [None]
  - Dehydration [None]
  - Renal impairment [None]
